FAERS Safety Report 16790368 (Version 1)
Quarter: 2019Q4

REPORT INFORMATION
  Report Type: Spontaneous
  Country: US (occurrence: US)
  Receive Date: 20190909
  Receipt Date: 20190909
  Transmission Date: 20200122
  Serious: No
  Sender: FDA-Public Use
  Company Number: None

PATIENT
  Age: 92 Year
  Sex: Female
  Weight: 64.41 kg

DRUGS (1)
  1. PROCRIT [Suspect]
     Active Substance: ERYTHROPOIETIN
     Indication: PLASMA CELL MYELOMA
     Dosage: ?          OTHER FREQUENCY:20000U SQ ONCE WK;?
     Route: 058
     Dates: start: 20140904, end: 20190909

REACTIONS (1)
  - Disease progression [None]

NARRATIVE: CASE EVENT DATE: 20190909
